FAERS Safety Report 5508995-X (Version None)
Quarter: 2007Q4

REPORT INFORMATION
  Report Type: 
  Country: None (occurrence: None)
  Receive Date: 20071107
  Receipt Date: 20071030
  Transmission Date: 20080405
  Serious: Yes (Death)
  Sender: FDA-Public Use
  Company Number: JP-SANOFI-SYNTHELABO-A01200709735

PATIENT
  Age: 72 Year
  Sex: Male
  Weight: 59.9 kg

DRUGS (10)
  1. NORVASC [Concomitant]
     Indication: BLOOD PRESSURE ABNORMAL
     Route: 048
     Dates: end: 20070413
  2. NORVASC [Concomitant]
     Route: 048
     Dates: start: 20070413, end: 20070508
  3. NORVASC [Concomitant]
     Route: 048
     Dates: start: 20070508, end: 20070706
  4. NORVASC [Concomitant]
     Route: 048
     Dates: start: 20070706
  5. ARTIST [Concomitant]
     Indication: PROPHYLAXIS
     Route: 048
     Dates: end: 20070413
  6. ARTIST [Concomitant]
     Route: 048
     Dates: start: 20070413
  7. TAKEPRON [Concomitant]
     Indication: DRUG USE FOR UNKNOWN INDICATION
     Dosage: UNK
     Route: 048
  8. LIPITOR [Concomitant]
     Indication: PROPHYLAXIS
     Route: 048
  9. PLAVIX [Suspect]
     Indication: THROMBOSIS PROPHYLAXIS
     Route: 048
     Dates: start: 20070508, end: 20070813
  10. PLAVIX [Suspect]
     Indication: CAROTID ARTERY ANEURYSM
     Route: 048
     Dates: start: 20070508, end: 20070813

REACTIONS (2)
  - BLOOD PRESSURE DECREASED [None]
  - CARDIAC FAILURE ACUTE [None]
